FAERS Safety Report 11457374 (Version 3)
Quarter: 2016Q3

REPORT INFORMATION
  Report Type: Spontaneous
  Country: IT (occurrence: IT)
  Receive Date: 20150904
  Receipt Date: 20160726
  Transmission Date: 20161109
  Serious: Yes (Other)
  Sender: FDA-Public Use
  Company Number: IT-AUROBINDO-AUR-APL-2015-07797

PATIENT
  Age: 55 Year
  Sex: Female

DRUGS (2)
  1. NEURABEN [Suspect]
     Active Substance: CYANOCOBALAMIN\PYRIDOXINE\THIAMINE
     Indication: POLYNEUROPATHY
     Dosage: 1 DF DAILY
     Route: 048
     Dates: start: 20150801, end: 20150807
  2. ACICLOVIR TABLETS [Suspect]
     Active Substance: ACYCLOVIR
     Indication: HERPES ZOSTER
     Dosage: 1 DF DAILY
     Route: 048
     Dates: start: 20150729, end: 20150807

REACTIONS (2)
  - Rash [Recovered/Resolved]
  - Arthralgia [Recovered/Resolved]

NARRATIVE: CASE EVENT DATE: 20150807
